FAERS Safety Report 4516482-0 (Version None)
Quarter: 2004Q4

REPORT INFORMATION
  Report Type: 
  Country: None (occurrence: None)
  Receive Date: 20041012
  Receipt Date: 20040830
  Transmission Date: 20050328
  Serious: No
  Sender: FDA-Public Use
  Company Number: PHEH2004US09419

PATIENT
  Age: 79 Year
  Sex: Female

DRUGS (1)
  1. ELIDEL [Suspect]
     Indication: NEURODERMATITIS
     Dosage: TOPICAL
     Route: 061
     Dates: start: 20040824, end: 20040825

REACTIONS (3)
  - CONDITION AGGRAVATED [None]
  - PRURITUS [None]
  - RASH [None]
